FAERS Safety Report 4932479-0 (Version None)
Quarter: 2006Q1

REPORT INFORMATION
  Report Type: 
  Country: None (occurrence: None)
  Receive Date: 20060227
  Receipt Date: 20060214
  Transmission Date: 20060701
  Serious: Yes (Life-Threatening)
  Sender: FDA-Public Use
  Company Number: 000#8#2006-00096

PATIENT
  Age: 43 Year
  Sex: Male

DRUGS (7)
  1. NITROGLYCERIN [Suspect]
     Indication: BLOOD PRESSURE INCREASED
     Dosage: 2 SINGLE DOSES OF 0.5 MG; INTRAVENOUS (NOT OTHERWISE SPECIFIED)
     Route: 042
  2. NITROGLYCERIN [Suspect]
     Indication: PROCEDURAL HYPERTENSION
     Dosage: 2 SINGLE DOSES OF 0.5 MG; INTRAVENOUS (NOT OTHERWISE SPECIFIED)
     Route: 042
  3. NIFEDIPINE [Concomitant]
  4. THIOPENTAL SODIUM [Concomitant]
  5. FENTANYL CITRATE [Concomitant]
  6. ATRACURIUM [Concomitant]
  7. ISOFLURANE [Concomitant]

REACTIONS (10)
  - ABDOMINAL PAIN [None]
  - BLOOD PH DECREASED [None]
  - BLOOD PRESSURE INCREASED [None]
  - HYPOXIA [None]
  - NAUSEA [None]
  - PO2 DECREASED [None]
  - PULMONARY VASCULAR DISORDER [None]
  - PYREXIA [None]
  - VASOCONSTRICTION [None]
  - VOMITING [None]
